FAERS Safety Report 6044004-4 (Version None)
Quarter: 2009Q1

REPORT INFORMATION
  Report Type: 
  Country: None (occurrence: None)
  Receive Date: 20090120
  Receipt Date: 20070727
  Transmission Date: 20090719
  Serious: Yes (Death)
  Sender: FDA-Public Use
  Company Number: US-ASTRAZENECA-2006UW09029

PATIENT
  Age: 612 Month
  Sex: Male
  Weight: 92.5 kg

DRUGS (99)
  1. SEROQUEL [Suspect]
     Indication: SCHIZOPHRENIA
     Route: 048
     Dates: start: 20030911
  2. SEROQUEL [Suspect]
     Indication: DEPRESSION
     Route: 048
     Dates: start: 20030911
  3. SEROQUEL [Suspect]
     Route: 048
     Dates: start: 20030924
  4. SEROQUEL [Suspect]
     Route: 048
     Dates: start: 20030924
  5. SEROQUEL [Suspect]
     Route: 048
     Dates: start: 20040102
  6. SEROQUEL [Suspect]
     Route: 048
     Dates: start: 20040102
  7. SEROQUEL [Suspect]
     Route: 048
     Dates: start: 20050606
  8. SEROQUEL [Suspect]
     Route: 048
     Dates: start: 20050606
  9. SEROQUEL [Suspect]
     Route: 048
     Dates: start: 20050616
  10. SEROQUEL [Suspect]
     Route: 048
     Dates: start: 20050616
  11. SEROQUEL [Suspect]
     Route: 048
     Dates: start: 20050621
  12. SEROQUEL [Suspect]
     Route: 048
     Dates: start: 20050621
  13. SEROQUEL [Suspect]
     Route: 048
     Dates: start: 20060622
  14. SEROQUEL [Suspect]
     Route: 048
     Dates: start: 20060622
  15. RISPERDAL [Suspect]
     Indication: SCHIZOPHRENIA
     Dates: start: 19950101
  16. RISPERDAL [Suspect]
     Indication: DEPRESSION
     Dates: start: 19950101
  17. RISPERDAL [Suspect]
     Dates: start: 19980901, end: 20030927
  18. RISPERDAL [Suspect]
     Dates: start: 19980901, end: 20030927
  19. ZYPREXA ZYDIS [Suspect]
     Indication: SCHIZOPHRENIA
     Dates: start: 20040630, end: 20060617
  20. ZYPREXA ZYDIS [Suspect]
     Indication: DEPRESSION
     Dates: start: 20040630, end: 20060617
  21. ZYPREXA ZYDIS [Suspect]
     Dates: start: 20040630, end: 20060617
  22. ZYPREXA ZYDIS [Suspect]
     Dates: start: 20040630, end: 20060617
  23. DEPAKOTE [Concomitant]
     Dates: start: 19980919
  24. DEPAKOTE [Concomitant]
     Dates: start: 19981130
  25. DEPAKOTE [Concomitant]
     Dates: start: 19990120
  26. DEPAKOTE [Concomitant]
     Dates: start: 19990217
  27. DEPAKOTE [Concomitant]
     Dates: start: 19990322
  28. DEPAKOTE [Concomitant]
     Dates: start: 19990322
  29. DEPAKOTE [Concomitant]
     Dates: start: 20000112
  30. DEPAKOTE [Concomitant]
     Dates: start: 20031021
  31. DEPAKOTE [Concomitant]
     Dates: start: 20040102
  32. GEODON [Concomitant]
     Dates: start: 20040428
  33. GEMFIBROZIL [Concomitant]
     Dates: start: 19980919
  34. AMOXICILLIN [Concomitant]
     Dates: start: 20000117
  35. NIZORAL [Concomitant]
     Dates: start: 20000222
  36. DESOWEN [Concomitant]
     Dates: start: 20000222
  37. PREVIDENT [Concomitant]
     Dates: start: 20000226
  38. LIPITOR [Concomitant]
     Dates: start: 20000310
  39. LIPITOR [Concomitant]
     Dates: start: 20020727
  40. LIPITOR [Concomitant]
     Dates: start: 20050914
  41. LIPITOR [Concomitant]
     Dates: start: 20050914
  42. PENICILLIN VK [Concomitant]
     Dates: start: 20000406
  43. HYDROCOD/APAP [Concomitant]
     Dosage: 7.5/750 MG
     Dates: start: 20000428
  44. HYDROCOD/APAP [Concomitant]
     Dosage: 5/500
     Dates: start: 20030923
  45. HYDROCOD/APAP [Concomitant]
     Dosage: 7.5/750 MG
     Dates: start: 20040511
  46. VALTREX [Concomitant]
     Dates: start: 20000518
  47. VALTREX [Concomitant]
     Dates: start: 20000908
  48. VALTREX [Concomitant]
     Dates: start: 20001206
  49. CHLORHEXIDINE GLUCONATE [Concomitant]
     Route: 048
     Dates: start: 20000714
  50. DOXYCYCLINE [Concomitant]
     Dates: start: 20000714
  51. TEMAZEPAM [Concomitant]
     Dates: start: 20001208
  52. DICYCLOMINE [Concomitant]
     Dates: start: 20010401
  53. ANTISPASMODIC ELX [Concomitant]
     Dates: start: 20010417
  54. CYCLOBENZAPRINE HCL [Concomitant]
     Dates: start: 20010604
  55. APAP W/ CODEINE [Concomitant]
     Dates: start: 19990126
  56. APAP W/ CODEINE [Concomitant]
     Dates: start: 20010606
  57. BENZONATATE [Concomitant]
     Dates: start: 20010923
  58. TEQUIN [Concomitant]
     Dates: start: 20010923
  59. ERYTHROMYCIN [Concomitant]
     Dates: start: 20011227
  60. TOPAMAX [Concomitant]
     Dates: start: 20020102
  61. TOPAMAX [Concomitant]
     Dates: start: 20020102
  62. GLUCOVANCE [Concomitant]
     Dosage: 2.5/500 MG
     Dates: start: 20020104
  63. OXYCODONE AND ACETAMINOPHEN [Concomitant]
     Dosage: 5/325
     Dates: start: 20020221
  64. LORAZEPAM [Concomitant]
     Dates: start: 20020924
  65. LORAZEPAM [Concomitant]
     Dates: start: 20021009
  66. LORAZEPAM [Concomitant]
     Dates: start: 20030708
  67. LORAZEPAM [Concomitant]
     Dates: start: 20040212
  68. LORAZEPAM [Concomitant]
     Dates: start: 20040726
  69. LORAZEPAM [Concomitant]
     Dates: start: 20041018
  70. LORAZEPAM [Concomitant]
     Dates: start: 20050108
  71. LORAZEPAM [Concomitant]
     Dates: start: 20050503
  72. LORAZEPAM [Concomitant]
     Dates: start: 20060211
  73. DIPHENOXYLATE/ATR [Concomitant]
     Dates: start: 20021118
  74. DIPHENOXYLATE/ATR [Concomitant]
     Dates: start: 20021009
  75. CLONAZEPAM [Concomitant]
     Dates: start: 20021217
  76. CLONAZEPAM [Concomitant]
     Dates: start: 20021009
  77. CLONAZEPAM [Concomitant]
     Dates: start: 20060318
  78. PROPOXYPHENE NAPSYLATE AND ACETAMINOPHEN [Concomitant]
     Dates: start: 20030124
  79. PROPOXYPHENE NAPSYLATE AND ACETAMINOPHEN [Concomitant]
     Dates: start: 20021009
  80. CLINDAMYCIN HCL [Concomitant]
     Dates: start: 20030206
  81. CLINDAMYCIN HCL [Concomitant]
     Dates: start: 20021009
  82. ZITHROMAX [Concomitant]
     Dates: start: 20010918
  83. ZITHROMAX [Concomitant]
     Dates: start: 20021009
  84. ECK CENTRAL-VITE [Concomitant]
     Dates: start: 20030422
  85. ECK CENTRAL-VITE [Concomitant]
     Dates: start: 20021009
  86. TRAZODONE HCL [Concomitant]
     Dates: start: 20030729
  87. LIDOCAINE [Concomitant]
     Dosage: 5%
     Dates: start: 20030826
  88. GLYBURIDE/METF [Concomitant]
     Dosage: 5/500 MG
     Dates: start: 20040717
  89. LUNESTA [Concomitant]
     Dates: start: 20060822
  90. METFORMIN HCL [Concomitant]
     Dates: start: 20060622
  91. ABILIFY [Concomitant]
     Dates: start: 20060622
  92. IBUPROFEN [Concomitant]
     Dates: start: 20060624
  93. METHYLPRED [Concomitant]
     Dates: start: 20060624
  94. CHANTIX [Concomitant]
     Dates: start: 20060905
  95. CHANTIX [Concomitant]
     Dates: start: 20070117
  96. AVANDAMET [Concomitant]
     Dosage: 4-500 MG
     Dates: start: 20060906
  97. GLIPIZIDE [Concomitant]
     Dates: start: 20061012
  98. TRIMOX [Concomitant]
     Dates: start: 19990303
  99. NAPROXEN SODIUM [Concomitant]
     Dates: start: 19990303

REACTIONS (2)
  - DEATH [None]
  - DIABETES MELLITUS [None]
